FAERS Safety Report 15262905 (Version 1)
Quarter: 2018Q3

REPORT INFORMATION
  Report Type: Spontaneous
  Country: US (occurrence: US)
  Receive Date: 20180810
  Receipt Date: 20180810
  Transmission Date: 20181010
  Serious: Yes (Other)
  Sender: FDA-Public Use
  Company Number: US-ASTRAZENECA-2018SE99794

PATIENT
  Sex: Male

DRUGS (2)
  1. METFORMIN [Concomitant]
     Active Substance: METFORMIN HYDROCHLORIDE
  2. BYDUREON [Suspect]
     Active Substance: EXENATIDE
     Route: 065
     Dates: start: 2016

REACTIONS (5)
  - Cardiac failure congestive [Unknown]
  - Neuropathy peripheral [Unknown]
  - Lactic acidosis [Unknown]
  - Chronic kidney disease [Unknown]
  - Weight decreased [Unknown]
